FAERS Safety Report 7264921-7 (Version None)
Quarter: 2011Q1

REPORT INFORMATION
  Report Type: 
  Country: None (occurrence: None)
  Receive Date: 20110131
  Receipt Date: 20101210
  Transmission Date: 20110831
  Serious: No
  Sender: FDA-Public Use
  Company Number: US-BAYER-201039658NA

PATIENT
  Sex: Female

DRUGS (1)
  1. YASMIN [Suspect]
     Indication: ORAL CONTRACEPTION
     Route: 048
     Dates: start: 20070101

REACTIONS (1)
  - PREGNANCY ON ORAL CONTRACEPTIVE [None]
